FAERS Safety Report 6919083-X (Version None)
Quarter: 2010Q3

REPORT INFORMATION
  Report Type: 
  Country: None (occurrence: None)
  Receive Date: 20100811
  Receipt Date: 20100803
  Transmission Date: 20110219
  Serious: Yes (Other)
  Sender: FDA-Public Use
  Company Number: PHHY2010US48608

PATIENT
  Sex: Female

DRUGS (15)
  1. EXELON [Suspect]
     Dosage: 4.6 MG, UNK
     Route: 062
     Dates: start: 20100430
  2. EXELON [Suspect]
     Dosage: 9.6 MG, UNK
     Route: 062
     Dates: start: 20100527
  3. EXELON [Suspect]
     Dosage: 4.6 MG, UNK
     Route: 062
     Dates: start: 20100715
  4. ARICEPT [Suspect]
     Dosage: UNK
     Dates: start: 20100621
  5. BIOFREEZE [Suspect]
  6. LEVOTHYROXINE [Concomitant]
  7. LANOXIN [Concomitant]
  8. HYDROCHLORZIDE [Concomitant]
  9. METOPROLOL [Concomitant]
     Dosage: UNK
  10. PAROXETINE [Concomitant]
  11. FISH OIL [Concomitant]
  12. MSM [Concomitant]
  13. MELATONIN [Concomitant]
  14. CITRACAL [Concomitant]
     Dosage: UNK
  15. CENTRUM [Concomitant]

REACTIONS (18)
  - ABNORMAL DREAMS [None]
  - BACK INJURY [None]
  - CONFUSIONAL STATE [None]
  - ERYTHEMA [None]
  - FALL [None]
  - FEELING HOT [None]
  - HEART RATE IRREGULAR [None]
  - HYPERHIDROSIS [None]
  - INITIAL INSOMNIA [None]
  - JOINT INJURY [None]
  - LIMB INJURY [None]
  - NECK INJURY [None]
  - NERVOUSNESS [None]
  - NIGHTMARE [None]
  - PALPITATIONS [None]
  - PRURITUS [None]
  - SKIN OEDEMA [None]
  - URTICARIA [None]
